FAERS Safety Report 7261657-3 (Version None)
Quarter: 2011Q1

REPORT INFORMATION
  Report Type: 
  Country: None (occurrence: None)
  Receive Date: 20110120
  Receipt Date: 20110105
  Transmission Date: 20110831
  Serious: Yes (Hospitalization, Other)
  Sender: FDA-Public Use
  Company Number: ACO_21317_2011

PATIENT
  Age: 40 Year
  Sex: Female

DRUGS (8)
  1. REQUIP [Concomitant]
  2. CALCIUM (CALCIUM) [Concomitant]
  3. TYSABRI [Concomitant]
  4. TOPAMAX [Concomitant]
  5. TYLENOL /00020001/ (PARACETAMOL) [Concomitant]
  6. AMPYRA (DALFAMPRIDINE) TABLET, 10MG [Suspect]
     Indication: GAIT DISTURBANCE
     Dosage: ORAL
     Route: 048
     Dates: start: 20100401, end: 20110101
  7. BACLOFEN [Concomitant]
  8. AMBIEN CR [Concomitant]

REACTIONS (2)
  - URINARY TRACT INFECTION [None]
  - EPILEPSY [None]
